FAERS Safety Report 9708664 (Version 1)
Quarter: 2013Q4

REPORT INFORMATION
  Report Type: Spontaneous
  Country: GB (occurrence: None)
  Receive Date: 20131121
  Receipt Date: 20131121
  Transmission Date: 20140711
  Serious: Yes (Life-Threatening, Hospitalization)
  Sender: FDA-Public Use
  Company Number: COL_14673_2013

PATIENT
  Age: 75 Year
  Sex: Male

DRUGS (14)
  1. DURAPHAT [Suspect]
     Indication: DENTAL CARIES
     Route: 061
     Dates: start: 20130926, end: 20130926
  2. DURAPHAT [Suspect]
     Indication: PROPHYLAXIS
     Route: 061
     Dates: start: 20130926, end: 20130926
  3. ATORVASTATIN [Concomitant]
  4. CALCICHEW D3 [Concomitant]
  5. CLOPIDOGREL [Concomitant]
  6. CO-CODAMOL [Concomitant]
  7. DEXAMETHASONE [Concomitant]
  8. DIETHYLSTILBESTROL [Concomitant]
  9. KEPPRA [Concomitant]
  10. LANSOPRAZOLE [Concomitant]
  11. NEBIVOLOL [Concomitant]
  12. PERINDOPRIL [Concomitant]
  13. PROLIA [Concomitant]
  14. ZOLADEX [Concomitant]

REACTIONS (1)
  - Hypersensitivity [None]
